FAERS Safety Report 11379649 (Version 1)
Quarter: 2015Q3

REPORT INFORMATION
  Report Type: Spontaneous
  Country: US (occurrence: None)
  Receive Date: 20150813
  Receipt Date: 20150813
  Transmission Date: 20151125
  Serious: Yes (Disabling)
  Sender: FDA-Public Use
  Company Number: None

PATIENT
  Age: 61 Year
  Sex: Female
  Weight: 86.18 kg

DRUGS (4)
  1. ATORVASTATIN 20 MG [Suspect]
     Active Substance: ATORVASTATIN
     Indication: BLOOD CHOLESTEROL INCREASED
     Dates: start: 20140907, end: 20150104
  2. FISH OIL [Concomitant]
     Active Substance: FISH OIL
  3. COQ10 [Concomitant]
     Active Substance: UBIDECARENONE
  4. VITAMIN D [Concomitant]
     Active Substance: CHOLECALCIFEROL

REACTIONS (2)
  - Muscular weakness [None]
  - Fear [None]

NARRATIVE: CASE EVENT DATE: 20150812
